FAERS Safety Report 20697755 (Version 2)
Quarter: 2022Q2

REPORT INFORMATION
  Report Type: Report from Study
  Country: MX (occurrence: MX)
  Receive Date: 20220411
  Receipt Date: 20220524
  Transmission Date: 20220721
  Serious: Yes (Other)
  Sender: FDA-Public Use
  Company Number: MX-ABBOTT-2022A-1344727

PATIENT
  Age: 14 Year
  Sex: Female
  Weight: 73 kg

DRUGS (5)
  1. EPIVAL [Suspect]
     Active Substance: DIVALPROEX SODIUM
     Indication: Epilepsy
     Dosage: DAILY DOSE 2000 MILLIGRAM, 2-0-2 (TWO TABLETS AT THE MORNING AND TWO TABLETS AT THE NIGHT)
     Route: 048
     Dates: start: 2001
  2. DEPAKENE [Suspect]
     Active Substance: VALPROIC ACID
     Indication: Epilepsy
     Route: 065
  3. SABRIL [Concomitant]
     Active Substance: VIGABATRIN
     Indication: Product used for unknown indication
  4. KEPPRA [Concomitant]
     Active Substance: LEVETIRACETAM
     Indication: Product used for unknown indication
     Dosage: DAILY DOSE 1000 MILLIGRAM (1 - 0 - 1)
     Route: 048
  5. RIVOTRIL [Concomitant]
     Active Substance: CLONAZEPAM
     Indication: Product used for unknown indication
     Dosage: DAILY DOSE 0.5 MILLIGRAM (0.25 - 0 - 0.25)
     Route: 048

REACTIONS (7)
  - Syncope [Not Recovered/Not Resolved]
  - Fall [Unknown]
  - Discomfort [Unknown]
  - Product quality issue [Unknown]
  - Drug ineffective [Unknown]
  - Epilepsy [Unknown]
  - Hepatitis [Unknown]

NARRATIVE: CASE EVENT DATE: 20010101
